FAERS Safety Report 12405262 (Version 1)
Quarter: 2016Q2

REPORT INFORMATION
  Report Type: Spontaneous
  Country: US (occurrence: None)
  Receive Date: 20160525
  Receipt Date: 20160525
  Transmission Date: 20160815
  Serious: No
  Sender: FDA-Public Use
  Company Number: None

PATIENT
  Age: 62 Year
  Sex: Male
  Weight: 83.46 kg

DRUGS (1)
  1. THROMBIN, 5,000 PFIZER [Suspect]
     Active Substance: THROMBIN
     Indication: HAEMOSTASIS
     Dosage: 5000 IU ONCE INTRAOPERATIVE LUMBAR LFD
     Dates: start: 20160520

REACTIONS (1)
  - Liquid product physical issue [None]

NARRATIVE: CASE EVENT DATE: 20160520
